FAERS Safety Report 20637828 (Version 1)
Quarter: 2022Q1

REPORT INFORMATION
  Report Type: Spontaneous
  Country: US (occurrence: None)
  Receive Date: 20220324
  Receipt Date: 20220324
  Transmission Date: 20220423
  Serious: Yes (Other)
  Sender: FDA-Public Use
  Company Number: None

PATIENT
  Age: 28 Year
  Sex: Female
  Weight: 53.52 kg

DRUGS (5)
  1. METHYLPHENIDATE [Suspect]
     Active Substance: METHYLPHENIDATE
  2. FLUOXETINE [Suspect]
     Active Substance: FLUOXETINE HYDROCHLORIDE
  3. LEVOTHYROXINE [Suspect]
     Active Substance: LEVOTHYROXINE
  4. ALBUTEROL [Suspect]
     Active Substance: ALBUTEROL
  5. FLUTICASONE [Suspect]
     Active Substance: FLUTICASONE

REACTIONS (3)
  - Abortion spontaneous [None]
  - Maternal exposure during pregnancy [None]
  - Foetal exposure during pregnancy [None]

NARRATIVE: CASE EVENT DATE: 20211110
